FAERS Safety Report 17367806 (Version 1)
Quarter: 2020Q1

REPORT INFORMATION
  Report Type: Spontaneous
  Country: US (occurrence: US)
  Receive Date: 20200203
  Receipt Date: 20200203
  Transmission Date: 20200409
  Serious: No
  Sender: FDA-Public Use
  Company Number: None

PATIENT
  Age: 41 Year
  Sex: Female
  Weight: 103.5 kg

DRUGS (2)
  1. AZITHROMYCIN 250MG TABLETS [Suspect]
     Active Substance: AZITHROMYCIN
     Indication: SINUSITIS
     Dosage: ?          QUANTITY:6 TABLET(S);OTHER FREQUENCY:2X DAY 1;?
     Route: 048
     Dates: start: 20200127, end: 20200130
  2. LABETALOL [Concomitant]
     Active Substance: LABETALOL\LABETALOL HYDROCHLORIDE

REACTIONS (6)
  - Gastrooesophageal reflux disease [None]
  - Nausea [None]
  - Diarrhoea [None]
  - Pruritus [None]
  - Tachycardia [None]
  - Abdominal discomfort [None]

NARRATIVE: CASE EVENT DATE: 20200131
